FAERS Safety Report 4951872-3 (Version None)
Quarter: 2006Q1

REPORT INFORMATION
  Report Type: 
  Country: None (occurrence: None)
  Receive Date: 20060323
  Receipt Date: 20060203
  Transmission Date: 20060701
  Serious: Yes (Other)
  Sender: FDA-Public Use
  Company Number: US-MERCK-0602USA00636

PATIENT
  Age: 44 Year
  Sex: Female
  Weight: 91 kg

DRUGS (29)
  1. TRIMOX [Concomitant]
     Route: 065
  2. SEROQUEL [Concomitant]
     Route: 065
  3. HYDROCHLOROTHIAZIDE [Concomitant]
     Route: 065
  4. BUSPIRONE HYDROCHLORIDE [Concomitant]
     Route: 065
  5. CLONAZEPAM [Concomitant]
     Route: 065
  6. OXYCONTIN [Concomitant]
     Route: 065
  7. BROMOCRIPTINE [Concomitant]
     Route: 065
  8. DOXYCYCLINE [Concomitant]
     Route: 065
  9. CEPHALEXIN [Concomitant]
     Route: 065
  10. VIOXX [Suspect]
     Indication: BACK PAIN
     Route: 048
     Dates: start: 20010101, end: 20040101
  11. VIOXX [Suspect]
     Indication: SPINAL COLUMN STENOSIS
     Route: 048
     Dates: start: 20010101, end: 20040101
  12. MS CONTIN [Concomitant]
     Route: 065
  13. SOMA [Concomitant]
     Route: 065
  14. BUSPAR [Concomitant]
     Route: 065
  15. ELAVIL [Concomitant]
     Route: 065
  16. KLONOPIN [Concomitant]
     Route: 065
  17. TRAZODONE HYDROCHLORIDE [Concomitant]
     Route: 065
  18. MORPHINE SULFATE [Concomitant]
     Route: 065
  19. VICODIN [Concomitant]
     Route: 065
  20. NEURONTIN [Concomitant]
     Route: 065
  21. BACLOFEN [Concomitant]
     Route: 065
  22. LORAZEPAM [Concomitant]
     Route: 065
  23. QUININE SULFATE [Concomitant]
     Route: 065
  24. DIAZEPAM [Concomitant]
     Route: 065
  25. LITHIUM CITRATE [Concomitant]
     Route: 065
  26. DEPAKOTE [Concomitant]
     Route: 065
  27. TOPAMAX [Concomitant]
     Route: 065
  28. LEVOXYL [Concomitant]
     Route: 065
  29. IBUPROFEN [Concomitant]
     Route: 065

REACTIONS (29)
  - ABSCESS [None]
  - ANGINA PECTORIS [None]
  - BACK PAIN [None]
  - BLOOD CHOLESTEROL INCREASED [None]
  - CARDIOVASCULAR DISORDER [None]
  - CARPAL TUNNEL SYNDROME [None]
  - CEREBRAL ATROPHY [None]
  - CEREBROVASCULAR ACCIDENT [None]
  - CHEST PAIN [None]
  - DEHYDRATION [None]
  - DISORIENTATION [None]
  - DRUG WITHDRAWAL SYNDROME [None]
  - GASTROENTERITIS [None]
  - HEADACHE [None]
  - HYPOAESTHESIA [None]
  - HYPOKALAEMIA [None]
  - INJURY [None]
  - LUNG NEOPLASM [None]
  - MASS [None]
  - NAUSEA [None]
  - NECK PAIN [None]
  - NEUROLOGICAL SYMPTOM [None]
  - PAIN IN EXTREMITY [None]
  - PITUITARY TUMOUR BENIGN [None]
  - RADICULOPATHY [None]
  - SINUSITIS [None]
  - TACHYCARDIA [None]
  - VISION BLURRED [None]
  - VOMITING [None]
